FAERS Safety Report 6446511-9 (Version None)
Quarter: 2009Q4

REPORT INFORMATION
  Report Type: 
  Country: None (occurrence: None)
  Receive Date: 20091110
  Receipt Date: 20090929
  Transmission Date: 20100525
  Serious: Yes (Hospitalization)
  Sender: FDA-Public Use
  Company Number: 1000007284

PATIENT
  Age: 61 Year
  Sex: Female
  Weight: 97.0698 kg

DRUGS (12)
  1. SAVELLA [Suspect]
     Indication: FIBROMYALGIA
     Dosage: ORAL
     Route: 048
     Dates: start: 20090608, end: 20090615
  2. CLONAZEPAM [Concomitant]
  3. INDOMETHACIN [Concomitant]
  4. POTASSIUM CHLORIDE [Concomitant]
  5. TRAZODONE HCL [Concomitant]
  6. SIMVASTATIN [Concomitant]
  7. TYLENOL SINUS [Concomitant]
  8. ASPIRIN [Concomitant]
  9. PRILOSEC [Concomitant]
  10. TYELENOL ARTHRITIS [Concomitant]
  11. CALTRATE [Concomitant]
  12. VITAMINS [Concomitant]

REACTIONS (1)
  - STEVENS-JOHNSON SYNDROME [None]
